FAERS Safety Report 15505546 (Version 2)
Quarter: 2022Q4

REPORT INFORMATION
  Report Type: Spontaneous
  Country: RO (occurrence: RO)
  Receive Date: 20181016
  Receipt Date: 20221017
  Transmission Date: 20230113
  Serious: Yes (Other)
  Sender: FDA-Public Use
  Company Number: RO-SUN PHARMACEUTICAL INDUSTRIES LTD-2018RR-187804

PATIENT
  Age: 42 Year
  Sex: Female

DRUGS (5)
  1. AMLODIPINE [Suspect]
     Active Substance: AMLODIPINE BESYLATE
     Indication: Hypertension
     Dosage: 20 MG, DAILY
     Route: 065
  2. INDAPAMIDE [Suspect]
     Active Substance: INDAPAMIDE
     Indication: Hypertension
     Dosage: 1.5 MG, DAILY
     Route: 065
  3. HYDROCHLOROTHIAZIDE\ZOFENOPRIL [Suspect]
     Active Substance: HYDROCHLOROTHIAZIDE\ZOFENOPRIL
     Indication: Hypertension
     Dosage: 30 MG, DAILY
     Route: 065
  4. BETAXOLOL [Suspect]
     Active Substance: BETAXOLOL
     Indication: Hypertension
     Dosage: 10 MG, DAILY
     Route: 005
  5. RILMENIDINE [Suspect]
     Active Substance: RILMENIDINE
     Indication: Hypertension
     Dosage: 1 CP/DAY
     Route: 065

REACTIONS (3)
  - Vascular resistance systemic [Recovered/Resolved]
  - Multiple-drug resistance [Recovered/Resolved]
  - Blood pressure inadequately controlled [Recovered/Resolved]
